FAERS Safety Report 9163172 (Version 1)
Quarter: 2013Q1

REPORT INFORMATION
  Report Type: Spontaneous
  Country: PT (occurrence: None)
  Receive Date: 20130227
  Receipt Date: 20130227
  Transmission Date: 20140127
  Serious: Yes (Other)
  Sender: FDA-Public Use
  Company Number: AUR-APL-2013-01728

PATIENT
  Age: 12 Year
  Sex: Male

DRUGS (2)
  1. CEFTAZIDIME [Suspect]
     Indication: PSEUDOMONAS INFECTION
  2. TOBRAMYCIN (TOBRAMYCIN) [Concomitant]

REACTIONS (3)
  - Cystic fibrosis [None]
  - Condition aggravated [None]
  - Type I hypersensitivity [None]
